FAERS Safety Report 17980115 (Version 1)
Quarter: 2020Q3

REPORT INFORMATION
  Report Type: Spontaneous
  Country: AU (occurrence: AU)
  Receive Date: 20200703
  Receipt Date: 20200703
  Transmission Date: 20201103
  Serious: Yes (Hospitalization, Other)
  Sender: FDA-Public Use
  Company Number: AU-BRISTOL-MYERS SQUIBB COMPANY-BMS-2020-051744

PATIENT
  Age: 53 Year
  Sex: Male
  Weight: 137 kg

DRUGS (10)
  1. COD LIVER OIL [Concomitant]
     Active Substance: COD LIVER OIL
     Indication: ADVERSE EVENT
     Dosage: UNK
     Route: 065
     Dates: start: 20200325
  2. PROBIOTICS NOS [Concomitant]
     Active Substance: PROBIOTICS NOS
     Indication: ADVERSE EVENT
     Dosage: UNK
     Route: 065
     Dates: start: 20180104
  3. AVELUMAB [Suspect]
     Active Substance: AVELUMAB
     Indication: METASTATIC RENAL CELL CARCINOMA
     Dosage: 10 MILLIGRAM/KILOGRAM, Q2WK
     Route: 041
     Dates: start: 20170906
  4. APIXABAN [Suspect]
     Active Substance: APIXABAN
     Indication: DEEP VEIN THROMBOSIS
     Dosage: 5 MILLIGRAM, BID
     Route: 048
     Dates: start: 20171112, end: 20200604
  5. AXITINIB [Suspect]
     Active Substance: AXITINIB
     Indication: METASTATIC RENAL CELL CARCINOMA
     Dosage: 3 MILLIGRAM, BID
     Route: 048
     Dates: start: 20170906, end: 20200428
  6. CLARATYNE [Concomitant]
     Active Substance: LORATADINE
     Indication: FUNGAL SKIN INFECTION
     Dosage: UNK
     Route: 065
     Dates: start: 20200325
  7. STAPHYLEX [FLUCLOXACILLIN MAGNESIUM] [Concomitant]
     Indication: FUNGAL SKIN INFECTION
     Dosage: UNK
     Route: 065
     Dates: start: 20200306
  8. CLOTRIMAZOLE. [Concomitant]
     Active Substance: CLOTRIMAZOLE
     Indication: FUNGAL SKIN INFECTION
     Dosage: UNK
     Route: 065
     Dates: start: 20200306
  9. IRBESARTAN. [Concomitant]
     Active Substance: IRBESARTAN
     Indication: HYPERTENSION
     Dosage: UNK
     Route: 065
     Dates: start: 20200507, end: 20200604
  10. THYROXINE [Concomitant]
     Active Substance: LEVOTHYROXINE
     Indication: THYROIDITIS
     Dosage: UNK
     Route: 065
     Dates: start: 20191114

REACTIONS (2)
  - Retroperitoneal haemorrhage [Recovered/Resolved]
  - Adrenal haemorrhage [Recovered/Resolved]

NARRATIVE: CASE EVENT DATE: 20200603
